FAERS Safety Report 16006064 (Version 1)
Quarter: 2019Q1

REPORT INFORMATION
  Report Type: Spontaneous
  Country: BY (occurrence: BY)
  Receive Date: 20190226
  Receipt Date: 20190226
  Transmission Date: 20190418
  Serious: Yes (Hospitalization, Other)
  Sender: FDA-Public Use
  Company Number: BY-009507513-1902BLR008040

PATIENT
  Age: 42 Year
  Sex: Male
  Weight: 72.02 kg

DRUGS (7)
  1. DELAMANID [Suspect]
     Active Substance: DELAMANID
     Indication: TUBERCULOSIS
     Dosage: 200 UNK, QD
     Route: 048
     Dates: start: 20170914
  2. LINEZOLID. [Suspect]
     Active Substance: LINEZOLID
     Indication: TUBERCULOSIS
     Dosage: 600 UNK, QD
     Route: 048
     Dates: start: 20170914
  3. AMIKACIN. [Suspect]
     Active Substance: AMIKACIN
     Dosage: UNK UNK, TIW
     Route: 030
     Dates: start: 20171207, end: 20180529
  4. IMIPENEM AND CILASTATIN [Suspect]
     Active Substance: CILASTATIN SODIUM\IMIPENEM
     Indication: TUBERCULOSIS
     Dosage: 2000 UNK, QD
     Route: 042
     Dates: start: 20170914
  5. CLOFAZIMINE [Suspect]
     Active Substance: CLOFAZIMINE
     Indication: TUBERCULOSIS
     Dosage: 100 UNK, QD
     Route: 048
     Dates: start: 20170914
  6. AMIKACIN. [Suspect]
     Active Substance: AMIKACIN
     Indication: TUBERCULOSIS
     Dosage: 1000 UNK, 6 DAYS PER WEEK
     Route: 030
     Dates: start: 20170914, end: 2017
  7. AMOXICILLIN (+) CLAVULANATE POTASSIUM [Suspect]
     Active Substance: AMOXICILLIN\CLAVULANATE POTASSIUM
     Indication: TUBERCULOSIS
     Dosage: 2500 UNK, QD
     Route: 048
     Dates: start: 20170914

REACTIONS (1)
  - Deafness neurosensory [Not Recovered/Not Resolved]

NARRATIVE: CASE EVENT DATE: 20180522
